FAERS Safety Report 14288254 (Version 1)
Quarter: 2017Q4

REPORT INFORMATION
  Report Type: Spontaneous
  Country: BR (occurrence: BR)
  Receive Date: 20171214
  Receipt Date: 20171214
  Transmission Date: 20180321
  Serious: Yes (Other)
  Sender: FDA-Public Use
  Company Number: BR-TEVA-812090ROM

PATIENT
  Sex: Male

DRUGS (5)
  1. ADDERA D3 [Concomitant]
     Active Substance: CHOLECALCIFEROL
  2. PROLOPA [Concomitant]
     Active Substance: BENSERAZIDE\LEVODOPA
     Route: 065
  3. OMEGA 3 [Concomitant]
     Active Substance: OMEGA-3 FATTY ACIDS
  4. ALENDRONATE [Concomitant]
     Active Substance: ALENDRONATE SODIUM
  5. AZILECT [Suspect]
     Active Substance: RASAGILINE MESYLATE
     Indication: FREEZING PHENOMENON
     Dosage: 1 MILLIGRAM DAILY;
     Route: 065

REACTIONS (6)
  - Clonus [Recovered/Resolved]
  - Loss of consciousness [Recovered/Resolved]
  - Dystonia [Recovered/Resolved]
  - Electroencephalogram abnormal [Recovered/Resolved]
  - Simple partial seizures [Recovered/Resolved]
  - Focal dyscognitive seizures [Recovered/Resolved]
